FAERS Safety Report 7089192-6 (Version None)
Quarter: 2010Q4

REPORT INFORMATION
  Report Type: 
  Country: None (occurrence: None)
  Receive Date: 20101029
  Receipt Date: 20101018
  Transmission Date: 20110411
  Serious: Yes (Hospitalization, Other)
  Sender: FDA-Public Use
  Company Number: 2010P1002094

PATIENT
  Age: 54 Year
  Sex: Male

DRUGS (1)
  1. METRONIDAZOLE [Suspect]
     Indication: BRONCHIECTASIS

REACTIONS (4)
  - CEREBELLAR SYNDROME [None]
  - DYSARTHRIA [None]
  - GRAND MAL CONVULSION [None]
  - SPEECH DISORDER [None]
